FAERS Safety Report 13796230 (Version 1)
Quarter: 2017Q3

REPORT INFORMATION
  Report Type: Spontaneous
  Country: GB (occurrence: GB)
  Receive Date: 20170726
  Receipt Date: 20170726
  Transmission Date: 20171127
  Serious: Yes (Other)
  Sender: FDA-Public Use
  Company Number: GB-ELI_LILLY_AND_COMPANY-GB201707009897

PATIENT
  Age: 32 Year
  Sex: Female
  Weight: 87.8 kg

DRUGS (1)
  1. DULOXETINE HYDROCHLORIDE. [Suspect]
     Active Substance: DULOXETINE HYDROCHLORIDE
     Indication: SCIATICA
     Dosage: 20 MG, BID
     Route: 048
     Dates: start: 20170713, end: 20170716

REACTIONS (9)
  - Vomiting [Recovered/Resolved]
  - Nausea [Recovering/Resolving]
  - Chills [Recovered/Resolved]
  - Trismus [Recovered/Resolved]
  - Vision blurred [Recovered/Resolved]
  - Migraine [Recovered/Resolved]
  - Anxiety [Recovering/Resolving]
  - Off label use [Recovered/Resolved]
  - Balance disorder [Recovered/Resolved]

NARRATIVE: CASE EVENT DATE: 20170713
